FAERS Safety Report 8546473 (Version 3)
Quarter: 2013Q1

REPORT INFORMATION
  Report Type: Report from Study
  Country: PL (occurrence: PL)
  Receive Date: 20120504
  Receipt Date: 20130207
  Transmission Date: 20140127
  Serious: Yes (Life-Threatening, Hospitalization)
  Sender: FDA-Public Use
  Company Number: PL-MILLENNIUM PHARMACEUTICALS, INC.-2012-02895

PATIENT
  Sex: 0

DRUGS (3)
  1. VELCADE [Suspect]
     Indication: PLASMA CELL MYELOMA
     Dosage: 2 MG, UNK
     Route: 065
     Dates: end: 20110310
  2. CAELYX [Concomitant]
     Dosage: UNK
     Dates: end: 20110320
  3. DEXAMETHASONE [Concomitant]
     Dosage: UNK
     Dates: end: 20110320

REACTIONS (2)
  - H1N1 influenza [Recovered/Resolved]
  - Pneumonia [Recovered/Resolved]
